FAERS Safety Report 11846238 (Version 1)
Quarter: 2015Q4

REPORT INFORMATION
  Report Type: Report from Study
  Country: BR (occurrence: BR)
  Receive Date: 20151217
  Receipt Date: 20151217
  Transmission Date: 20160305
  Serious: Yes (Other)
  Sender: FDA-Public Use
  Company Number: PHHY2015BR080394

PATIENT
  Sex: Female
  Weight: 57 kg

DRUGS (1)
  1. EXJADE [Suspect]
     Active Substance: DEFERASIROX
     Indication: THALASSAEMIA BETA
     Dosage: 3 DF (25 MG/KG), QD
     Route: 048
     Dates: start: 2010

REACTIONS (2)
  - Serum ferritin increased [Unknown]
  - Varicose ulceration [Unknown]
